FAERS Safety Report 8929423 (Version 1)
Quarter: 2012Q4

REPORT INFORMATION
  Report Type: Report from Study
  Country: CN (occurrence: CN)
  Receive Date: 20121127
  Receipt Date: 20121127
  Transmission Date: 20130627
  Serious: Yes (Hospitalization)
  Sender: FDA-Public Use
  Company Number: CN-009507513-0808CHN00020

PATIENT
  Age: 63 Year
  Sex: Female
  Weight: 73 kg

DRUGS (16)
  1. ASPIRIN [Suspect]
     Indication: HIGH DENSITY LIPOPROTEIN DECREASED
     Route: 048
     Dates: start: 20071220, end: 20080813
  2. BLINDED EZETIMIBE (+) SIMVASTATIN [Suspect]
     Indication: HIGH DENSITY LIPOPROTEIN DECREASED
     Route: 048
     Dates: start: 20071220, end: 20080813
  3. NIACIN [Suspect]
     Indication: HIGH DENSITY LIPOPROTEIN DECREASED
     Route: 048
     Dates: start: 20071220, end: 20080813
  4. BLINDED NIACIN (+) LAROPIPRANT [Suspect]
     Indication: HIGH DENSITY LIPOPROTEIN DECREASED
     Route: 048
     Dates: start: 20071220, end: 20080813
  5. BLINDED PLACEBO [Suspect]
     Indication: HIGH DENSITY LIPOPROTEIN DECREASED
     Route: 048
     Dates: start: 20071220, end: 20080813
  6. BLINDED POST TRIAL THERAPY [Suspect]
     Indication: HIGH DENSITY LIPOPROTEIN DECREASED
     Route: 048
     Dates: start: 20071220, end: 20080813
  7. BLINDED PRE TRIAL THERAPY [Suspect]
     Indication: HIGH DENSITY LIPOPROTEIN DECREASED
     Route: 048
     Dates: start: 20071220, end: 20080813
  8. BLINDED SIMVASTATIN [Suspect]
     Indication: HIGH DENSITY LIPOPROTEIN DECREASED
     Route: 048
     Dates: start: 20071220, end: 20080813
  9. EZETROL [Suspect]
     Dosage: 10-40
     Route: 048
     Dates: start: 20070924, end: 20080813
  10. ZOCOR [Suspect]
     Dosage: 40 mg, UNK
     Dates: start: 20070827, end: 20080813
  11. ASPIRIN [Concomitant]
  12. INSULIN [Concomitant]
  13. NIFEDIPINE [Concomitant]
  14. VALSARTAN [Concomitant]
  15. METFORMIN [Concomitant]
  16. METOPROLOL [Concomitant]

REACTIONS (1)
  - Myopathy [Recovered/Resolved]
